FAERS Safety Report 8772692 (Version 2)
Quarter: 2012Q4

REPORT INFORMATION
  Report Type: 
  Country: US (occurrence: US)
  Receive Date: 20120905
  Receipt Date: 20120917
  Transmission Date: 20130627
  Serious: Yes (Hospitalization, Other)
  Sender: FDA-Public Use
  Company Number: US-PFIZER INC-2012217282

PATIENT
  Age: 55 Year
  Sex: Male

DRUGS (3)
  1. GEODON [Suspect]
     Indication: MOOD ALTERED
     Dosage: 80 mg, 2x/day
     Route: 048
     Dates: start: 20040630
  2. GEODON [Suspect]
     Dosage: 240 mg, daily
     Route: 048
     Dates: start: 20060413
  3. GEODON [Suspect]
     Dosage: 160 mg, daily
     Route: 048

REACTIONS (2)
  - Convulsion [Unknown]
  - Mental status changes [Unknown]
